FAERS Safety Report 12160837 (Version 3)
Quarter: 2016Q3

REPORT INFORMATION
  Report Type: Report from Study
  Country: US (occurrence: US)
  Receive Date: 20160308
  Receipt Date: 20160809
  Transmission Date: 20161109
  Serious: Yes (Hospitalization)
  Sender: FDA-Public Use
  Company Number: US-EISAI MEDICAL RESEARCH-EC-2015-010537

PATIENT
  Sex: Female
  Weight: 53.9 kg

DRUGS (14)
  1. MAGIC MOUTHWASH [Concomitant]
     Active Substance: DIPHENHYDRAMINE HYDROCHLORIDE\LIDOCAINE HYDROCHLORIDE\NYSTATIN
  2. LENVIMA [Suspect]
     Active Substance: LENVATINIB
     Indication: PAPILLARY THYROID CANCER
     Route: 048
     Dates: start: 20150812, end: 20150912
  3. IBUPROFEN. [Concomitant]
     Active Substance: IBUPROFEN
  4. CALCITRATE [Concomitant]
     Active Substance: CALCIUM CITRATE
  5. LENVIMA [Suspect]
     Active Substance: LENVATINIB
     Route: 048
     Dates: start: 20151015
  6. LENVIMA [Suspect]
     Active Substance: LENVATINIB
     Route: 048
  7. CYPROHEPTADINE HYDROCHLORIDE. [Concomitant]
     Active Substance: CYPROHEPTADINE HYDROCHLORIDE
  8. AMLODIPINE [Concomitant]
     Active Substance: AMLODIPINE BESYLATE
  9. LISINOPRIL AND HYDROCHLOROTHIAZIDE [Concomitant]
     Active Substance: HYDROCHLOROTHIAZIDE\LISINOPRIL
  10. SYNTHROID [Concomitant]
     Active Substance: LEVOTHYROXINE SODIUM
  11. BENTYL [Concomitant]
     Active Substance: DICYCLOMINE HYDROCHLORIDE
  12. ZOLPIDEM TARTRATE. [Concomitant]
     Active Substance: ZOLPIDEM TARTRATE
  13. LORAZEPAM. [Concomitant]
     Active Substance: LORAZEPAM
  14. KLOR-CON [Concomitant]
     Active Substance: POTASSIUM CHLORIDE

REACTIONS (21)
  - Hypoacusis [Unknown]
  - Tinnitus [Unknown]
  - Rash [Unknown]
  - Epistaxis [Unknown]
  - Nausea [Recovered/Resolved]
  - Fatigue [Unknown]
  - Vomiting [Recovered/Resolved]
  - Weight gain poor [Unknown]
  - Dyspnoea [Unknown]
  - Diarrhoea [Recovered/Resolved]
  - Blood pressure increased [Unknown]
  - Abdominal pain upper [Recovering/Resolving]
  - Oropharyngeal pain [Unknown]
  - Decreased appetite [Recovered/Resolved]
  - Anxiety [Unknown]
  - Blood potassium decreased [Unknown]
  - Weight decreased [Unknown]
  - Arthralgia [Unknown]
  - Pain in extremity [Unknown]
  - Nervousness [Unknown]
  - Chest discomfort [Unknown]

NARRATIVE: CASE EVENT DATE: 2015
